FAERS Safety Report 6439998-9 (Version None)
Quarter: 2009Q4

REPORT INFORMATION
  Report Type: 
  Country: None (occurrence: None)
  Receive Date: 20091112
  Receipt Date: 20091112
  Transmission Date: 20100525
  Serious: Yes (Hospitalization, Disabling)
  Sender: FDA-Public Use
  Company Number: None

PATIENT
  Age: 55 Year
  Sex: Female
  Weight: 89 kg

DRUGS (7)
  1. NUCYNTA [Suspect]
     Indication: PAIN
     Dosage: 100MG Q4-6H PO ^RECENTLY STARTED^
     Route: 048
  2. PAROXETINE HCL [Suspect]
     Indication: MOOD SWINGS
     Dosage: 60MG QD PO LONG TERM
     Route: 048
  3. CYTOMEL [Concomitant]
  4. CLONIDINE [Concomitant]
  5. RANITIDINNE [Concomitant]
  6. FLUTICASONE [Concomitant]
  7. TOBRADEX [Concomitant]

REACTIONS (3)
  - BLOOD PRESSURE INCREASED [None]
  - DRUG TOXICITY [None]
  - SEROTONIN SYNDROME [None]
